FAERS Safety Report 8576929-X (Version None)
Quarter: 2012Q3

REPORT INFORMATION
  Report Type: 
  Country: None (occurrence: None)
  Receive Date: 20120807
  Receipt Date: 20120801
  Transmission Date: 20120928
  Serious: Yes (Other)
  Sender: FDA-Public Use
  Company Number: PHEH2012US013668

PATIENT
  Sex: Female
  Weight: 70.295 kg

DRUGS (9)
  1. NEURONTIN [Concomitant]
     Dosage: 100 MG, UNK
     Route: 048
  2. AMBIEN [Concomitant]
     Dosage: 10 MG, UNK
     Route: 048
  3. VICODIN [Concomitant]
     Dosage: 1 DF, UNK
  4. GILENYA [Suspect]
     Indication: MULTIPLE SCLEROSIS
     Dosage: 0.5 MG, QD
     Route: 048
     Dates: start: 20120629
  5. BUPROPION HYDROCHLORIDE [Concomitant]
     Dosage: 100 MG, UNK
     Route: 048
  6. VITAMIN D [Concomitant]
     Dosage: 1000 U, UNK
  7. LORAZEPAM [Concomitant]
     Dosage: 0.5 MG, UNK
     Route: 048
  8. IBUPROFEN [Concomitant]
     Dosage: 200 MG, UNK
     Route: 048
  9. NUVIGIL [Concomitant]
     Indication: SOMNOLENCE
     Dosage: 150 MG, UNK

REACTIONS (9)
  - FRUSTRATION [None]
  - WEIGHT DECREASED [None]
  - SINUS TACHYCARDIA [None]
  - ARRHYTHMIA SUPRAVENTRICULAR [None]
  - FATIGUE [None]
  - DIZZINESS [None]
  - SOMNOLENCE [None]
  - VERTIGO [None]
  - DEPRESSION [None]
